FAERS Safety Report 7293084-7 (Version None)
Quarter: 2011Q1

REPORT INFORMATION
  Report Type: 
  Country: None (occurrence: None)
  Receive Date: 20110203
  Receipt Date: 20090619
  Transmission Date: 20110831
  Serious: No
  Sender: FDA-Public Use
  Company Number: 2009-00072

PATIENT
  Age: 55 Year
  Sex: Female
  Weight: 90.7194 kg

DRUGS (2)
  1. ZICAM COLD REMEDY GEL SWABS [Suspect]
     Dates: start: 20070201
  2. EFFEXOR [Concomitant]

REACTIONS (4)
  - ANOSMIA [None]
  - DRUG HYPERSENSITIVITY [None]
  - NASAL INFLAMMATION [None]
  - DIABETES MELLITUS INADEQUATE CONTROL [None]
